FAERS Safety Report 25550952 (Version 1)
Quarter: 2025Q3

REPORT INFORMATION
  Report Type: Spontaneous
  Country: US (occurrence: US)
  Receive Date: 20250714
  Receipt Date: 20250714
  Transmission Date: 20251020
  Serious: Yes (Hospitalization)
  Sender: INTRA-CELLULAR THERAPIES
  Company Number: US-INTRA-CELLULAR THERAPIES, INC.-2025ICT00701

PATIENT
  Age: 3 Decade
  Sex: Female

DRUGS (2)
  1. CAPLYTA [Suspect]
     Active Substance: LUMATEPERONE
     Indication: Bipolar disorder
  2. UNSPECIFIED SELECTIVE SEROTONIN REUPTAKE INHIBITOR (SSRI) [Concomitant]

REACTIONS (2)
  - Nausea [Unknown]
  - Headache [Unknown]
